FAERS Safety Report 5120444-2 (Version None)
Quarter: 2006Q4

REPORT INFORMATION
  Report Type: 
  Country: None (occurrence: None)
  Receive Date: 20061002
  Receipt Date: 20060918
  Transmission Date: 20070319
  Serious: Yes (Death, Other)
  Sender: FDA-Public Use
  Company Number: 2006SP001860

PATIENT
  Age: 64 Year
  Sex: Male

DRUGS (1)
  1. TEMODAL [Suspect]

REACTIONS (1)
  - DEATH [None]
